FAERS Safety Report 5404219-2 (Version None)
Quarter: 2007Q3

REPORT INFORMATION
  Report Type: 
  Country: None (occurrence: None)
  Receive Date: 20070802
  Receipt Date: 20070727
  Transmission Date: 20080115
  Serious: Yes (Other)
  Sender: FDA-Public Use
  Company Number: PHEH2007US02834

PATIENT
  Age: 74 Year
  Sex: Female

DRUGS (4)
  1. FELODIPINE [Concomitant]
     Dosage: 5 MG, QD
  2. FUROSEMIDE [Concomitant]
     Dosage: 40 UNK, QD
  3. HYTRIN [Concomitant]
     Dosage: UNK, QHS
     Dates: start: 19920101
  4. LOPRESSOR [Suspect]

REACTIONS (5)
  - BALANCE DISORDER [None]
  - CARDIAC PACEMAKER INSERTION [None]
  - CATHETERISATION CARDIAC [None]
  - CEREBROVASCULAR ACCIDENT [None]
  - DIZZINESS [None]
